FAERS Safety Report 7714750-2 (Version None)
Quarter: 2011Q3

REPORT INFORMATION
  Report Type: 
  Country: None (occurrence: None)
  Receive Date: 20110829
  Receipt Date: 20110819
  Transmission Date: 20111222
  Serious: Yes (Other)
  Sender: FDA-Public Use
  Company Number: US-JNJFOC-20110508640

PATIENT
  Age: 5 Year
  Sex: Male

DRUGS (2)
  1. CONCERTA [Suspect]
     Indication: PRODUCT USED FOR UNKNOWN INDICATION
     Route: 048
     Dates: start: 20110316
  2. ABILIFY [Concomitant]
     Indication: AGGRESSION
     Dosage: EACH NIGHT AT BEDTIME
     Route: 065
     Dates: start: 20100101

REACTIONS (8)
  - PYREXIA [None]
  - HYPERSENSITIVITY [None]
  - PRURITUS GENERALISED [None]
  - RASH [None]
  - SWOLLEN TONGUE [None]
  - DRUG PRESCRIBING ERROR [None]
  - LIP SWELLING [None]
  - PRODUCT QUALITY ISSUE [None]
